FAERS Safety Report 7909744-8 (Version None)
Quarter: 2011Q4

REPORT INFORMATION
  Report Type: 
  Country: None (occurrence: None)
  Receive Date: 20111111
  Receipt Date: 20111031
  Transmission Date: 20120403
  Serious: Yes (Hospitalization, Other)
  Sender: FDA-Public Use
  Company Number: US-ELI_LILLY_AND_COMPANY-US201111001909

PATIENT
  Sex: Female

DRUGS (7)
  1. LISINOPRIL [Concomitant]
  2. SYNTHROID [Concomitant]
  3. VITAMINS NOS [Concomitant]
  4. CALCIUM [Concomitant]
  5. METOPROLOL [Concomitant]
  6. ASPIRIN [Concomitant]
  7. FORTEO [Suspect]
     Indication: OSTEOPOROSIS
     Dosage: 20 UG, QD
     Route: 065
     Dates: start: 20101001

REACTIONS (6)
  - MUSCULOSKELETAL DISCOMFORT [None]
  - TRANSIENT ISCHAEMIC ATTACK [None]
  - MUSCLE SPASMS [None]
  - PULMONARY CONGESTION [None]
  - BODY HEIGHT DECREASED [None]
  - COUGH [None]
